FAERS Safety Report 16212417 (Version 3)
Quarter: 2020Q1

REPORT INFORMATION
  Report Type: Spontaneous
  Country: US (occurrence: US)
  Receive Date: 20190418
  Receipt Date: 20200218
  Transmission Date: 20200409
  Serious: No
  Sender: FDA-Public Use
  Company Number: US-PFIZER INC-2019159947

PATIENT
  Age: 74 Year
  Sex: Female

DRUGS (1)
  1. PREMPRO [Suspect]
     Active Substance: ESTROGENS, CONJUGATED\MEDROXYPROGESTERONE ACETATE
     Indication: HORMONE REPLACEMENT THERAPY
     Dosage: UNK[STRENGTH: 0.3 MG/1.5 MG]

REACTIONS (4)
  - Anxiety [Unknown]
  - Product dispensing error [Unknown]
  - Dyspnoea [Unknown]
  - Restlessness [Unknown]
